FAERS Safety Report 6337787-7 (Version None)
Quarter: 2009Q3

REPORT INFORMATION
  Report Type: 
  Country: None (occurrence: None)
  Receive Date: 20090902
  Receipt Date: 20090825
  Transmission Date: 20100115
  Serious: Yes (Hospitalization)
  Sender: FDA-Public Use
  Company Number: A0772826A

PATIENT
  Age: 55 Year
  Sex: Male
  Weight: 93.2 kg

DRUGS (11)
  1. AVANDIA [Suspect]
     Indication: DIABETES MELLITUS
     Dosage: 4MG TWICE PER DAY
     Route: 048
     Dates: start: 20040513, end: 20060401
  2. METFORMIN HCL [Concomitant]
  3. GLUCOVANCE [Concomitant]
  4. PROTONIX [Concomitant]
  5. ARTHROTEC [Concomitant]
  6. ENALAPRIL MALEATE [Concomitant]
  7. LISINOPRIL [Concomitant]
  8. KETOCONAZOLE [Concomitant]
  9. AFEDITAB CR [Concomitant]
  10. GEMFIBROZIL [Concomitant]
  11. WELLBUTRIN SR [Concomitant]

REACTIONS (2)
  - CARDIAC FAILURE CONGESTIVE [None]
  - MYOCARDIAL INFARCTION [None]
